FAERS Safety Report 8353132-X (Version None)
Quarter: 2012Q2

REPORT INFORMATION
  Report Type: 
  Country: None (occurrence: None)
  Receive Date: 20120511
  Receipt Date: 20120221
  Transmission Date: 20120825
  Serious: Yes (Hospitalization, Other)
  Sender: FDA-Public Use
  Company Number: DE-ASTRAZENECA-2012SE12320

PATIENT
  Age: 49 Year
  Sex: Male

DRUGS (10)
  1. METOPROLOL SUCCINATE [Suspect]
     Route: 048
  2. TRIMIPRAMINE MALEATE [Interacting]
     Route: 048
     Dates: start: 20111101, end: 20111117
  3. METOPROLOL TARTRATE [Interacting]
     Route: 048
  4. BUPROPION HYDROCHLORIDE [Interacting]
     Route: 048
     Dates: start: 20111102, end: 20111107
  5. TRIMIPRAMINE MALEATE [Interacting]
     Route: 048
     Dates: start: 20111020, end: 20111031
  6. BUPROPION HYDROCHLORIDE [Interacting]
     Route: 048
     Dates: start: 20111026, end: 20111101
  7. TRIMIPRAMINE MALEATE [Interacting]
     Route: 048
     Dates: start: 20111019, end: 20111019
  8. PANTOPRAZOLE [Concomitant]
     Route: 048
  9. BUPROPION HYDROCHLORIDE [Interacting]
     Route: 048
     Dates: start: 20111108, end: 20111108
  10. ASPIRIN [Concomitant]
     Route: 048

REACTIONS (2)
  - DYSKINESIA [None]
  - DRUG INTERACTION [None]
